FAERS Safety Report 21994340 (Version 3)
Quarter: 2023Q1

REPORT INFORMATION
  Report Type: Report from Study
  Country: LT (occurrence: LT)
  Receive Date: 20230215
  Receipt Date: 20230302
  Transmission Date: 20230417
  Serious: Yes (Hospitalization)
  Sender: FDA-Public Use
  Company Number: LT-002147023-NVSC2023LT032043

PATIENT
  Age: 63 Year
  Sex: Male
  Weight: 85 kg

DRUGS (6)
  1. SIPONIMOD [Suspect]
     Active Substance: SIPONIMOD
     Indication: Secondary progressive multiple sclerosis
     Dosage: UNK
     Route: 048
     Dates: start: 20130903, end: 20160223
  2. SIPONIMOD [Suspect]
     Active Substance: SIPONIMOD
     Indication: Secondary progressive multiple sclerosis
     Dosage: 2 MG, QD
     Route: 048
     Dates: start: 20160317
  3. PERINDOPRILUM [Concomitant]
     Indication: Hypertension
     Dosage: 10 MG , 1 TABLET
     Route: 048
     Dates: start: 20200831
  4. AMLODIPINUM [Concomitant]
     Indication: Hypertension
     Dosage: 10 MG, QD
     Route: 048
     Dates: start: 20200831
  5. INDAPAMIDE [Concomitant]
     Active Substance: INDAPAMIDE
     Indication: Hypertension
     Dosage: 1.5 MG, QD
     Route: 048
     Dates: start: 20230116
  6. BROMAZEPAM [Concomitant]
     Active Substance: BROMAZEPAM
     Indication: Hypertension
     Dosage: 3 MG, QD
     Route: 048
     Dates: start: 20230201, end: 20230207

REACTIONS (1)
  - Cerebrovascular accident [Recovered/Resolved with Sequelae]

NARRATIVE: CASE EVENT DATE: 20230201
